FAERS Safety Report 5749500-2 (Version None)
Quarter: 2008Q2

REPORT INFORMATION
  Report Type: 
  Country: None (occurrence: None)
  Receive Date: 20080527
  Receipt Date: 20080514
  Transmission Date: 20081010
  Serious: Yes (Other)
  Sender: FDA-Public Use
  Company Number: B0520453A

PATIENT
  Age: 51 Year
  Sex: Female

DRUGS (2)
  1. LAPATINIB [Suspect]
     Dosage: 1250MG PER DAY
     Route: 048
     Dates: start: 20070501
  2. XELODA [Suspect]
     Dosage: 2000MGM2 PER DAY
     Route: 048
     Dates: start: 20070501

REACTIONS (2)
  - ASTHENIA [None]
  - DIARRHOEA [None]
